FAERS Safety Report 4706584-8 (Version None)
Quarter: 2005Q3

REPORT INFORMATION
  Report Type: 
  Country: None (occurrence: None)
  Receive Date: 20050705
  Receipt Date: 20050622
  Transmission Date: 20060218
  Serious: Yes (Other)
  Sender: FDA-Public Use
  Company Number: 2005AP03526

PATIENT

DRUGS (1)
  1. XYLOCAINE [Suspect]

REACTIONS (1)
  - DRUG TOXICITY [None]
